FAERS Safety Report 9064640 (Version 2)
Quarter: 2013Q1

REPORT INFORMATION
  Report Type: Report from Study
  Country: JP (occurrence: JP)
  Receive Date: 20130214
  Receipt Date: 20130225
  Transmission Date: 20140127
  Serious: Yes (Other)
  Sender: FDA-Public Use
  Company Number: JP-OTSUKA-JP-2013-10103

PATIENT
  Age: 74 None
  Sex: Male

DRUGS (52)
  1. SAMSCA [Suspect]
     Indication: FLUID RETENTION
     Dosage: 15 MG MILLIGRAM(S), QPM
     Route: 050
     Dates: start: 20121121, end: 20121121
  2. SAMSCA [Suspect]
     Dosage: 15 MG MILLIGRAM(S), QAM
     Route: 050
     Dates: start: 20121122, end: 20121123
  3. PENLES [Concomitant]
     Indication: SURGERY
     Dosage: 18 MG MILLIGRAM(S), DAILY DOSE
     Route: 061
     Dates: start: 20121114, end: 20121114
  4. GASCON [Concomitant]
     Indication: PREOPERATIVE CARE
     Dosage: 120 MG MILLIGRAM(S), DAILY DOSE
     Route: 048
     Dates: start: 20121116, end: 20121119
  5. SENNOSIDE [Concomitant]
     Indication: PREOPERATIVE CARE
     Dosage: 24 MG MILLIGRAM(S), DAILY DOSE
     Route: 048
     Dates: start: 20121116, end: 20121119
  6. POPIYODON [Concomitant]
     Indication: INFECTION PROPHYLAXIS
     Dosage: UNK, QS
     Route: 048
     Dates: start: 20121116, end: 20121119
  7. GOODMIN [Concomitant]
     Indication: PREOPERATIVE CARE
     Dosage: 0.25 MG MILLIGRAM(S), DAILY DOSE
     Route: 048
     Dates: start: 20121118, end: 20121118
  8. MAGCOROL P [Concomitant]
     Indication: PREOPERATIVE CARE
     Dosage: 50 G GRAM(S), DAILY DOSE
     Route: 048
     Dates: start: 20121118, end: 20121118
  9. LECICARBON [Concomitant]
     Indication: PREOPERATIVE CARE
     Dosage: 1 DF DOSAGE FORM, DAILY DOSE
     Route: 054
     Dates: start: 20121118, end: 20121119
  10. ULTIVA [Concomitant]
     Indication: ANAESTHETIC PREMEDICATION
     Dosage: 10 MG MILLIGRAM(S), DAILY DOSE
     Route: 042
     Dates: start: 20121119, end: 20121119
  11. HEPARIN [Concomitant]
     Dosage: 15 KIU IU(1000S), DAILY DOSE
     Route: 065
     Dates: start: 20121119, end: 20121119
  12. ADONA [Concomitant]
     Indication: HAEMOSTASIS
     Dosage: 100 MG MILLIGRAM(S), DAILY DOSE
     Route: 042
     Dates: start: 20121120, end: 20121120
  13. MILRINONE [Concomitant]
     Indication: CARDIAC FAILURE
     Dosage: 1 ML MILLILITRE(S), DAILY DOSE
     Route: 042
     Dates: start: 20121120, end: 20121120
  14. PHYSIOLOGICAL SALINE SOLUTION [Concomitant]
     Indication: MEDICATION DILUTION
     Dosage: 40 ML MILLILITRE(S), DAILY DOSE
     Route: 042
     Dates: end: 20121119
  15. TRANSAMIN [Concomitant]
     Indication: HAEMOSTASIS
     Dosage: 10 ML MILLILITRE(S), DAILY DOSE
     Route: 042
     Dates: end: 20121120
  16. FENTANYL [Concomitant]
     Indication: INDUCTION OF ANAESTHESIA
     Dosage: 20 ML MILLILITRE(S), DAILY DOSE
     Route: 042
     Dates: end: 20121119
  17. FENTANYL [Concomitant]
     Dosage: 50 ML MILLILITRE(S), DAILY DOSE
     Route: 042
     Dates: end: 20121119
  18. BACTROBAN [Concomitant]
     Indication: INFECTION PROPHYLAXIS
     Dosage: 0.5 UNK, QS
     Route: 045
     Dates: end: 20121119
  19. NOVO PROTAMINE SULFATE [Concomitant]
     Indication: HEPARIN NEUTRALISATION THERAPY
     Dosage: 30 ML MILLILITRE(S), DAILY DOSE
     Route: 042
     Dates: end: 20121119
  20. SIGMART [Concomitant]
     Indication: PROPHYLAXIS
     Dosage: 48 MG MILLIGRAM(S), DAILY DOSE
     Route: 042
     Dates: end: 20121119
  21. MEYLON [Concomitant]
     Indication: PROPHYLAXIS
     Dosage: 20 ML MILLILITRE(S), DAILY DOSE
     Route: 042
     Dates: end: 20121119
  22. HANP [Concomitant]
     Indication: CARDIAC FAILURE
     Dosage: 3000 MCG, DAILY DOSE
     Route: 042
     Dates: end: 20121119
  23. CALCIUM CHLORIDE HYDRATE [Concomitant]
     Indication: PROPHYLAXIS
     Dosage: 80 ML MILLILITRE(S), DAILY DOSE
     Route: 042
     Dates: end: 20121119
  24. SAXIZON [Concomitant]
     Indication: PROPHYLAXIS
     Dosage: 1000 MG MILLIGRAM(S), DAILY DOSE
     Route: 042
     Dates: end: 20121119
  25. MAGNESOL [Concomitant]
     Indication: PROPHYLAXIS
     Dosage: 100 ML MILLILITRE(S), DAILY DOSE
     Route: 042
     Dates: end: 20121119
  26. ONOACT [Concomitant]
     Indication: CARDIAC FAILURE
     Dosage: 150 MG MILLIGRAM(S), DAILY DOSE
     Route: 042
     Dates: end: 20121119
  27. KCL [Concomitant]
     Indication: PROPHYLAXIS
     Dosage: 200 ML MILLILITRE(S), DAILY DOSE
     Route: 042
     Dates: end: 20121119
  28. PAPAVERINE HYDROCHLORIDE [Concomitant]
     Indication: PROPHYLAXIS
     Dosage: 1 ML MILLILITRE(S), DAILY DOSE
     Dates: end: 20121119
  29. BREVIBLOC [Concomitant]
     Indication: ANAESTHESIA PROCEDURE
     Dosage: 100 MG MILLIGRAM(S), DAILY DOSE
     Route: 042
     Dates: end: 20121119
  30. SOLDEM 1 [Concomitant]
     Indication: FLUID REPLACEMENT
     Dosage: 500 ML MILLILITRE(S), DAILY DOSE
     Route: 042
     Dates: end: 20121120
  31. SOLDEM 3A [Concomitant]
     Indication: FLUID REPLACEMENT
     Dosage: 500 ML MILLILITRE(S), DAILY DOSE
     Route: 042
     Dates: end: 20121120
  32. MAGNESIUM SULFATE HYDRATE [Concomitant]
     Indication: PROPHYLAXIS
     Dosage: 40 ML MILLILITRE(S), DAILY DOSE
     Route: 042
     Dates: end: 20121120
  33. SEISHOKU [Concomitant]
     Indication: MEDICATION DILUTION
     Dosage: 100 ML MILLILITRE(S), DAILY DOSE
     Route: 042
     Dates: end: 20121122
  34. BFLUID [Concomitant]
     Indication: FLUID REPLACEMENT
     Dosage: 500 ML MILLILITRE(S), DAILY DOSE
     Route: 042
     Dates: end: 20121123
  35. ISOTONIC SODIUM CHLORIDE SOLUTION KIT [Concomitant]
     Indication: MEDICATION DILUTION
     Dosage: 100 ML MILLILITRE(S), DAILY DOSE
     Route: 042
     Dates: end: 20121123
  36. OMEPTOROL [Concomitant]
     Indication: PROPHYLAXIS
     Dosage: 20 MG MILLIGRAM(S), DAILY DOSE
     Route: 042
     Dates: end: 20121126
  37. SEFMAZON [Concomitant]
     Indication: PROPHYLAXIS
     Dosage: 1 G GRAM(S), DAILY DOSE
     Route: 042
     Dates: end: 20121126
  38. GLUCOSE [Concomitant]
     Indication: MEDICATION DILUTION
     Dosage: 250 ML MILLILITRE(S), DAILY DOSE
     Route: 042
     Dates: end: 20121126
  39. MIRACLID [Concomitant]
     Indication: PROPHYLAXIS
     Dosage: 3 ML MILLILITRE(S), DAILY DOSE
     Route: 042
     Dates: end: 20121126
  40. PROSTANDIN [Concomitant]
     Indication: PROPHYLAXIS
     Dosage: 1440 MG MILLIGRAM(S), DAILY DOSE
     Route: 042
     Dates: end: 20121201
  41. RADICUT [Concomitant]
     Dosage: 30 MG MILLIGRAM(S), DAILY DOSE
     Route: 041
     Dates: end: 20121203
  42. ELASPOL [Concomitant]
     Dosage: 300 MG MILLIGRAM(S), DAILY DOSE
     Route: 042
  43. PROBITOR [Concomitant]
     Indication: PROPHYLAXIS
     Dosage: 500 MG MILLIGRAM(S), DAILY DOSE
     Route: 042
  44. MANNITOL [Concomitant]
     Dosage: 96 ML MILLILITRE(S), DAILY DOSE
     Route: 042
  45. LASIX [Concomitant]
     Indication: CARDIAC FAILURE
     Dosage: 68 MG MILLIGRAM(S), DAILY DOSE
     Route: 042
  46. HUMULIN R [Concomitant]
     Dosage: 72 IU, DAILY DOSE
     Route: 042
  47. NALOXONE HYDROCHLORIDE [Concomitant]
     Dosage: 5 ML MILLILITRE(S), DAILY DOSE
     Route: 042
     Dates: start: 20121121, end: 20121125
  48. GLYCEOL [Concomitant]
     Dosage: 200 ML MILLILITRE(S), DAILY DOSE
     Route: 042
     Dates: start: 20121121, end: 20121203
  49. NORVASC [Concomitant]
     Dosage: 5 MG MILLIGRAM(S), DAILY DOSE
     Route: 048
     Dates: start: 20121122, end: 20121203
  50. ARTIST [Concomitant]
     Indication: CARDIAC FAILURE
     Dosage: 5 MG MILLIGRAM(S), DAILY DOSE
     Route: 050
     Dates: start: 20121122
  51. AMISALIN [Concomitant]
     Dosage: 500 MG MILLIGRAM(S), DAILY DOSE
     Route: 048
     Dates: start: 20121122, end: 20121201
  52. KIDMIN [Concomitant]
     Dosage: 200 ML MILLILITRE(S), DAILY DOSE
     Route: 042
     Dates: start: 20121123, end: 20121201

REACTIONS (4)
  - Blood urea increased [Recovering/Resolving]
  - Hypernatraemia [Recovered/Resolved]
  - Alanine aminotransferase increased [Recovered/Resolved]
  - Aspartate aminotransferase increased [Recovered/Resolved]
